FAERS Safety Report 7064980-0 (Version None)
Quarter: 2010Q4

REPORT INFORMATION
  Report Type: 
  Country: None (occurrence: None)
  Receive Date: 20101027
  Receipt Date: 20101014
  Transmission Date: 20110411
  Serious: Yes (Hospitalization)
  Sender: FDA-Public Use
  Company Number: US-ACTELION-A-NJ2010-36198

PATIENT
  Sex: Female

DRUGS (4)
  1. BOSENTAN TABLET UNKNOWN US MG [Suspect]
     Indication: PULMONARY ARTERIAL HYPERTENSION
     Dosage: UNK
     Route: 048
     Dates: start: 20100120
  2. WARFARIN SODIUM [Concomitant]
  3. METOPROLOL [Concomitant]
  4. AMIODARONE [Concomitant]

REACTIONS (3)
  - ARRHYTHMIA [None]
  - ATRIAL FIBRILLATION [None]
  - DYSPNOEA [None]
